FAERS Safety Report 6915542-4 (Version None)
Quarter: 2010Q3

REPORT INFORMATION
  Report Type: 
  Country: None (occurrence: None)
  Receive Date: 20100809
  Receipt Date: 20100728
  Transmission Date: 20110219
  Serious: No
  Sender: FDA-Public Use
  Company Number: CA-ELI_LILLY_AND_COMPANY-CA201007007735

PATIENT
  Age: 71 Year
  Sex: Male

DRUGS (3)
  1. CIALIS [Suspect]
     Indication: ERECTILE DYSFUNCTION
     Dosage: 20 MG, AS NEEDED
     Dates: start: 20100719
  2. RAMIPRIL [Concomitant]
  3. SIMVASTIN [Concomitant]

REACTIONS (4)
  - FEELING HOT [None]
  - GENERALISED ERYTHEMA [None]
  - LIBIDO INCREASED [None]
  - VISUAL IMPAIRMENT [None]
